FAERS Safety Report 8811633 (Version 1)
Quarter: 2012Q4

REPORT INFORMATION
  Report Type: 
  Country: US (occurrence: US)
  Receive Date: 20120927
  Receipt Date: 20120927
  Transmission Date: 20130627
  Serious: No
  Sender: FDA-Public Use
  Company Number: US-BAYER-2012-089449

PATIENT
  Sex: Male

DRUGS (1)
  1. STAXYN (FDT/ODT) [Suspect]
     Dosage: 10 mg, UNK
     Route: 048

REACTIONS (1)
  - Therapeutic response decreased [None]
